FAERS Safety Report 6349171-0 (Version None)
Quarter: 2009Q3

REPORT INFORMATION
  Report Type: 
  Country: None (occurrence: None)
  Receive Date: 20090911
  Receipt Date: 20090630
  Transmission Date: 20100115
  Serious: No
  Sender: FDA-Public Use
  Company Number: US-BAYER-200925182NA

PATIENT
  Age: 17 Year
  Sex: Female

DRUGS (2)
  1. YAZ [Suspect]
     Indication: MENORRHAGIA
     Route: 048
     Dates: start: 20080101
  2. DAYTRANA [Suspect]
     Dates: start: 20060101

REACTIONS (5)
  - DEPRESSED MOOD [None]
  - IRRITABILITY [None]
  - NO ADVERSE EVENT [None]
  - UNEVALUABLE EVENT [None]
  - WEIGHT INCREASED [None]
